FAERS Safety Report 8263915-2 (Version None)
Quarter: 2012Q2

REPORT INFORMATION
  Report Type: 
  Country: None (occurrence: None)
  Receive Date: 20120406
  Receipt Date: 20120330
  Transmission Date: 20120825
  Serious: Yes (Hospitalization)
  Sender: FDA-Public Use
  Company Number: US-BRISTOL-MYERS SQUIBB COMPANY-16319337

PATIENT
  Age: 68 Year
  Sex: Male
  Weight: 126 kg

DRUGS (2)
  1. LEUKINE [Suspect]
     Indication: MALIGNANT MELANOMA
     Dosage: LAST ADMINISTERED DATE:18OCT2011.
     Route: 058
     Dates: start: 20110805
  2. IPILIMUMAB [Suspect]
     Indication: MALIGNANT MELANOMA
     Dosage: LAST ADMINISTERED DATE:4OCT2011.
     Route: 042
     Dates: start: 20110805

REACTIONS (2)
  - PYREXIA [None]
  - SEPSIS [None]
